FAERS Safety Report 10662726 (Version 1)
Quarter: 2014Q4

REPORT INFORMATION
  Report Type: Spontaneous
  Country: FR (occurrence: FR)
  Receive Date: 20141218
  Receipt Date: 20141218
  Transmission Date: 20150529
  Serious: Yes (Other)
  Sender: FDA-Public Use
  Company Number: FR-JNJFOC-20141210105

PATIENT
  Age: 48 Year
  Sex: Female

DRUGS (10)
  1. SERETIDE [Concomitant]
     Active Substance: FLUTICASONE FUROATE\SALMETEROL XINAFOATE
     Dosage: IF NEEDED
     Route: 065
  2. PRAZEPAM [Concomitant]
     Active Substance: PRAZEPAM
     Route: 065
  3. DELURSAN [Concomitant]
     Active Substance: URSODIOL
     Dosage: ONE TABLET IN THE MORNING AND ONE TABLET??ON THE EVENING
     Route: 065
     Dates: start: 201409
  4. LEVOTHYROX [Concomitant]
     Active Substance: LEVOTHYROXINE
     Dosage: ONE TABLET IN THE MORNING AND ONE TABLET??ON THE EVENING
     Route: 065
     Dates: start: 201409
  5. ZOLPIDEM [Concomitant]
     Active Substance: ZOLPIDEM\ZOLPIDEM TARTRATE
     Dosage: IF NEEDED
     Route: 065
  6. VENLAFAXINE [Concomitant]
     Active Substance: VENLAFAXINE HYDROCHLORIDE
     Dosage: ONE TABLET IN THE MORNING AND ONE TABLET??ON THE EVENING
     Route: 065
     Dates: start: 201409
  7. BRICANYL [Concomitant]
     Active Substance: TERBUTALINE SULFATE
     Dosage: IF NEEDED
     Route: 065
  8. SIMPONI [Suspect]
     Active Substance: GOLIMUMAB
     Indication: ANKYLOSING SPONDYLITIS
     Route: 058
     Dates: start: 20130329
  9. HYDROCHLOROTHIAZIDE, VALSARTAN [Concomitant]
     Dosage: IF NEEDED
     Route: 065
  10. TRANSULOSE [Concomitant]
     Dosage: IF NEEDED
     Route: 065

REACTIONS (3)
  - Anxiety [Not Recovered/Not Resolved]
  - Suicidal ideation [Not Recovered/Not Resolved]
  - Suicide attempt [Not Recovered/Not Resolved]

NARRATIVE: CASE EVENT DATE: 20141111
